FAERS Safety Report 25811905 (Version 1)
Quarter: 2025Q3

REPORT INFORMATION
  Report Type: Spontaneous
  Country: US (occurrence: None)
  Receive Date: 20250916
  Receipt Date: 20250916
  Transmission Date: 20251020
  Serious: Yes (Other)
  Sender: FDA-CTU
  Company Number: None

PATIENT
  Age: 85 Year
  Sex: Male

DRUGS (1)
  1. VALCHLOR [Suspect]
     Active Substance: MECHLORETHAMINE
     Indication: Cutaneous T-cell lymphoma
     Dosage: FREQUENCY : DAILY;?STRENGTH: 0.16% TOPICAL GEL 60 GM
     Route: 061
     Dates: start: 20231025, end: 20250819

REACTIONS (1)
  - Skin irritation [None]

NARRATIVE: CASE EVENT DATE: 20250819
